FAERS Safety Report 6400632-5 (Version None)
Quarter: 2009Q4

REPORT INFORMATION
  Report Type: 
  Country: None (occurrence: None)
  Receive Date: 20091014
  Receipt Date: 20091002
  Transmission Date: 20100525
  Serious: Yes (Other)
  Sender: FDA-Public Use
  Company Number: PHHY2009JP42691

PATIENT
  Age: 42 Year
  Sex: Male

DRUGS (4)
  1. VOLTAREN [Suspect]
     Indication: HYPERTHERMIA
     Dosage: 25 MG DAILY
     Route: 048
     Dates: start: 20080815, end: 20080801
  2. VOLTAREN [Suspect]
     Dosage: 50 MG DAILY
     Route: 054
     Dates: start: 20080801, end: 20080801
  3. ANTIBIOTICS [Concomitant]
     Indication: HYPERTHERMIA
     Dosage: UNK
  4. ANTIBIOTICS [Concomitant]
     Indication: NASOPHARYNGITIS

REACTIONS (1)
  - BLOOD CREATINE PHOSPHOKINASE INCREASED [None]
